FAERS Safety Report 17027668 (Version 1)
Quarter: 2019Q4

REPORT INFORMATION
  Report Type: Spontaneous
  Country: US (occurrence: US)
  Receive Date: 20191113
  Receipt Date: 20191113
  Transmission Date: 20200122
  Serious: Yes (Hospitalization, Other)
  Sender: FDA-Public Use
  Company Number: US-VERTEX PHARMACEUTICALS-2019-010953

PATIENT
  Sex: Female

DRUGS (31)
  1. LEVOFLOXACIN. [Concomitant]
     Active Substance: LEVOFLOXACIN
  2. MIDODRINE [Concomitant]
     Active Substance: MIDODRINE
  3. RANITIDINE. [Concomitant]
     Active Substance: RANITIDINE
  4. VENTOLIN [Concomitant]
     Active Substance: ALBUTEROL SULFATE
  5. ENOXAPARIN [Concomitant]
     Active Substance: ENOXAPARIN
  6. FEROSUL [Concomitant]
  7. GABAPENTIN. [Concomitant]
     Active Substance: GABAPENTIN
  8. PREDNISONE. [Concomitant]
     Active Substance: PREDNISONE
  9. ALPRAZOLAM. [Concomitant]
     Active Substance: ALPRAZOLAM
  10. PULMOZYME [Concomitant]
     Active Substance: DORNASE ALFA
  11. COLISTIMETHATE SODIUM. [Concomitant]
     Active Substance: COLISTIMETHATE SODIUM
  12. LYRICA [Concomitant]
     Active Substance: PREGABALIN
  13. METHOCARBAMOL. [Concomitant]
     Active Substance: METHOCARBAMOL
  14. RIZATRIPTAN. [Concomitant]
     Active Substance: RIZATRIPTAN
  15. CEPHALEXIN [CEFALEXIN SODIUM] [Concomitant]
     Active Substance: CEPHALEXIN
  16. TRAZODONE [Concomitant]
     Active Substance: TRAZODONE HYDROCHLORIDE
  17. ALBUTEROL [SALBUTAMOL] [Concomitant]
     Active Substance: ALBUTEROL
  18. CAYSTON [Concomitant]
     Active Substance: AZTREONAM
  19. AMITRIPTYLINE [Concomitant]
     Active Substance: AMITRIPTYLINE
  20. CLONAZEPAM. [Concomitant]
     Active Substance: CLONAZEPAM
  21. ESOMEPRAZOLE. [Concomitant]
     Active Substance: ESOMEPRAZOLE MAGNESIUM
  22. OSELTAMIVIR [Concomitant]
     Active Substance: OSELTAMIVIR
  23. SMZ-TMP [Concomitant]
     Active Substance: SULFAMETHOXAZOLE\TRIMETHOPRIM
  24. TIZANIDINE. [Concomitant]
     Active Substance: TIZANIDINE
  25. VENLAFAXINE [Concomitant]
     Active Substance: VENLAFAXINE HYDROCHLORIDE
  26. AZITHROMYCIN ANHYDROUS. [Concomitant]
     Active Substance: AZITHROMYCIN ANHYDROUS
  27. DIVALPROEX [Concomitant]
     Active Substance: DIVALPROEX SODIUM
  28. SYMDEKO [Suspect]
     Active Substance: IVACAFTOR\TEZACAFTOR
     Indication: CYSTIC FIBROSIS
     Dosage: UNK, BID
     Route: 048
     Dates: start: 20180712
  29. CYCLOBENZAPRINE. [Concomitant]
     Active Substance: CYCLOBENZAPRINE
  30. HYDROMORPHONE [Concomitant]
     Active Substance: HYDROMORPHONE
  31. ONDANSETRON [Concomitant]
     Active Substance: ONDANSETRON

REACTIONS (2)
  - Infective pulmonary exacerbation of cystic fibrosis [Unknown]
  - Endocarditis [Unknown]

NARRATIVE: CASE EVENT DATE: 2019
